FAERS Safety Report 16892571 (Version 1)
Quarter: 2019Q4

REPORT INFORMATION
  Report Type: Other
  Country: US (occurrence: US)
  Receive Date: 20191007
  Receipt Date: 20191007
  Transmission Date: 20200122
  Serious: Yes (Hospitalization)
  Sender: FDA-Public Use
  Company Number: US-INTERCEPT-PM2019001701

PATIENT
  Age: 80 Year
  Sex: Female

DRUGS (2)
  1. OCALIVA [Suspect]
     Active Substance: OBETICHOLIC ACID
     Dosage: 10 MG, QD
     Route: 048
     Dates: start: 201906
  2. OCALIVA [Suspect]
     Active Substance: OBETICHOLIC ACID
     Indication: PRIMARY BILIARY CHOLANGITIS
     Dosage: 5 MG, QD
     Route: 048
     Dates: start: 201809, end: 201906

REACTIONS (7)
  - Pelvic fracture [Unknown]
  - Blood pressure abnormal [Unknown]
  - Pain [Recovering/Resolving]
  - Fall [Unknown]
  - Laboratory test abnormal [Unknown]
  - Loss of consciousness [Unknown]
  - Pruritus [Unknown]

NARRATIVE: CASE EVENT DATE: 2019
